FAERS Safety Report 8292857 (Version 10)
Quarter: 2013Q4

REPORT INFORMATION
  Report Type: Spontaneous
  Country: US (occurrence: US)
  Receive Date: 20111215
  Receipt Date: 20131023
  Transmission Date: 20140711
  Serious: Yes (Death, Hospitalization, Other)
  Sender: FDA-Public Use
  Company Number: US-GLAXOSMITHKLINE-A0953944A

PATIENT
  Age: 42 Year
  Sex: Female
  Weight: 76 kg

DRUGS (8)
  1. HYDRALAZINE [Concomitant]
  2. ASPIRIN [Concomitant]
  3. SENSIPAR [Concomitant]
  4. CLONIDINE [Concomitant]
  5. FLOLAN [Suspect]
     Indication: PULMONARY ARTERIAL HYPERTENSION
     Dosage: 36NGKM CONTINUOUS
     Dates: start: 20100707
  6. HUMALOG [Concomitant]
  7. LEVEMIR [Concomitant]
  8. PROCHLORPERAZINE [Concomitant]

REACTIONS (11)
  - Myocardial infarction [Recovered/Resolved]
  - Dizziness [Recovered/Resolved]
  - Fall [Recovered/Resolved]
  - Pain in jaw [Recovered/Resolved]
  - Diarrhoea [Recovered/Resolved]
  - Nausea [Recovered/Resolved]
  - Vomiting [Recovered/Resolved]
  - Musculoskeletal pain [Recovered/Resolved]
  - Wound infection [Recovered/Resolved]
  - Hospitalisation [Unknown]
  - Death [Fatal]
